FAERS Safety Report 5071772-0 (Version None)
Quarter: 2006Q3

REPORT INFORMATION
  Report Type: 
  Country: None (occurrence: None)
  Receive Date: 20060801
  Receipt Date: 20060717
  Transmission Date: 20061208
  Serious: Yes (Hospitalization, Other)
  Sender: FDA-Public Use
  Company Number: IMP_2363_2006

PATIENT
  Age: 68 Year
  Sex: Female

DRUGS (2)
  1. ORPHENADRINE [Suspect]
     Indication: MYALGIA
     Dosage: 1 DF TWICE PO
     Route: 048
  2. ORPHENADRINE [Suspect]
     Indication: TENSION
     Dosage: 1 DF TWICE PO
     Route: 048

REACTIONS (4)
  - BRADYCARDIA [None]
  - CHEST PAIN [None]
  - SYNCOPE [None]
  - TORSADE DE POINTES [None]
